FAERS Safety Report 21763485 (Version 2)
Quarter: 2023Q1

REPORT INFORMATION
  Report Type: Spontaneous
  Country: US (occurrence: US)
  Receive Date: 20221221
  Receipt Date: 20230112
  Transmission Date: 20230417
  Serious: Yes (Hospitalization, Other)
  Sender: FDA-Public Use
  Company Number: US-BIOVITRUM-2022US14763

PATIENT
  Sex: Female
  Weight: 4 kg

DRUGS (6)
  1. SYNAGIS [Suspect]
     Active Substance: PALIVIZUMAB
     Indication: Antiviral prophylaxis
     Dosage: DOSE OF 0.54 ML, 100MG/ML, GIVEN IN LEFT THIGH.
     Dates: start: 20221123
  2. SYNAGIS [Suspect]
     Active Substance: PALIVIZUMAB
     Dates: start: 20221222
  3. LEVOTHYROXINE [Concomitant]
     Active Substance: LEVOTHYROXINE
     Indication: Product used for unknown indication
     Dosage: 25 MCG (0.025 MG) TABLET
  4. ALDACTAZIDE [Concomitant]
     Active Substance: HYDROCHLOROTHIAZIDE\SPIRONOLACTONE
     Indication: Product used for unknown indication
     Dosage: 25 MG TABLET
  5. POLY-VI-SOL WITH IRON DROPS [Concomitant]
     Indication: Product used for unknown indication
  6. PEDIATRIC MULTIPLE VITAMINS WITH IRON LIQUID [Concomitant]
     Indication: Product used for unknown indication

REACTIONS (2)
  - Influenza [Recovered/Resolved]
  - Hypoxia [Recovered/Resolved]
